FAERS Safety Report 7403404-8 (Version None)
Quarter: 2011Q2

REPORT INFORMATION
  Report Type: 
  Country: None (occurrence: None)
  Receive Date: 20110408
  Receipt Date: 20101220
  Transmission Date: 20111010
  Serious: Yes (Hospitalization)
  Sender: FDA-Public Use
  Company Number: A0903057A

PATIENT
  Sex: Male

DRUGS (2)
  1. AVANDIA [Suspect]
     Indication: DIABETES MELLITUS
     Dosage: 4MG PER DAY
     Route: 048
     Dates: start: 20020101, end: 20090901
  2. AVANDAMET [Suspect]
     Indication: DIABETES MELLITUS
     Route: 048
     Dates: start: 20050801, end: 20050801

REACTIONS (12)
  - GENERAL PHYSICAL HEALTH DETERIORATION [None]
  - INJURY [None]
  - MALAISE [None]
  - DECREASED ACTIVITY [None]
  - CARDIOVASCULAR DISORDER [None]
  - FEAR [None]
  - IMPAIRED WORK ABILITY [None]
  - ECONOMIC PROBLEM [None]
  - ASTHENIA [None]
  - PAIN [None]
  - EMOTIONAL DISTRESS [None]
  - ANHEDONIA [None]
